FAERS Safety Report 5208338-5 (Version None)
Quarter: 2007Q1

REPORT INFORMATION
  Report Type: 
  Country: None (occurrence: None)
  Receive Date: 20070110
  Receipt Date: 20070110
  Transmission Date: 20070707
  Serious: Yes (Hospitalization)
  Sender: FDA-Public Use
  Company Number: None

PATIENT
  Sex: Female
  Weight: 78.36 kg

DRUGS (9)
  1. CISPLATIN [Suspect]
     Dosage: 108 MG
  2. ETOPOSIDE [Suspect]
     Dosage: 375 MG
  3. G-CSF (FILGRASTIM, AMGEN) [Suspect]
     Dosage: 3360 MG
  4. TOPOTECAN [Suspect]
     Dosage: 3.9 MG
  5. POTASSIUM ACETATE [Concomitant]
  6. SYNTHROID [Concomitant]
  7. XANAX [Concomitant]
  8. ZYRTEC [Concomitant]
  9. MULTI-VITAMIN [Concomitant]

REACTIONS (2)
  - FEMORAL ARTERY OCCLUSION [None]
  - PERIPHERAL ARTERIAL OCCLUSIVE DISEASE [None]
